FAERS Safety Report 6471931-6 (Version None)
Quarter: 2009Q4

REPORT INFORMATION
  Report Type: 
  Country: None (occurrence: None)
  Receive Date: 20091203
  Receipt Date: 20080528
  Transmission Date: 20100525
  Serious: Yes (Hospitalization)
  Sender: FDA-Public Use
  Company Number: US-ELI_LILLY_AND_COMPANY-US200804001267

PATIENT
  Sex: Female
  Weight: 83.9 kg

DRUGS (32)
  1. BYETTA [Suspect]
     Indication: TYPE 2 DIABETES MELLITUS
     Dosage: 5 UG, 2/D
     Route: 058
     Dates: start: 20050101, end: 20050101
  2. BYETTA [Suspect]
     Dosage: 10 UG, 2/D
     Route: 058
     Dates: start: 20050401
  3. GLUCOPHAGE [Concomitant]
     Indication: DIABETES MELLITUS
     Dosage: 1000 MG, 2/D
     Route: 048
  4. GLIMEPIRIDE [Concomitant]
     Indication: DIABETES MELLITUS
     Dosage: 2 MG, 3/D
     Route: 048
  5. GLIMEPIRIDE [Concomitant]
     Dosage: 2 MG, EACH EVENING
     Route: 048
  6. HUMULIN /00646001/ [Concomitant]
     Dosage: UNK, AS NEEDED
     Route: 058
  7. TIZANIDINE HCL [Concomitant]
     Indication: NECK PAIN
     Dosage: 2 MG, 3/D
     Route: 048
  8. LISINOPRIL [Concomitant]
     Dosage: 20 MG, DAILY (1/D)
     Route: 048
  9. BENZONATATE [Concomitant]
     Dosage: 200 MG, 3/D
     Route: 048
  10. ISOSORBIDE [Concomitant]
     Dosage: 30 MG, DAILY (1/D)
     Route: 048
     Dates: start: 20071201
  11. METOPROLOL [Concomitant]
     Dosage: 25 MG, 2/D
     Route: 048
     Dates: start: 20071201
  12. IRON [Concomitant]
     Dosage: 325 MG, 3/D
     Route: 048
  13. CRESTOR [Concomitant]
     Dosage: 10 MG, DAILY (1/D)
  14. NORTRIPTYLINE [Concomitant]
     Dosage: 25 MG, DAILY (1/D)
  15. DEPAKOTE [Concomitant]
     Dosage: 500 MG, 2/D
  16. IMITREX [Concomitant]
     Dosage: 50 MG, AS NEEDED
  17. AVAPRO [Concomitant]
     Dosage: 150 MG, DAILY (1/D)
  18. PROTONIX [Concomitant]
     Dosage: 40 MG, DAILY (1/D)
  19. DEXTROSTAT [Concomitant]
     Dosage: 5 MG, DAILY (1/D)
  20. GABAPENTIN [Concomitant]
     Dosage: 1500 MG, DAILY (1/D)
  21. ESTRADIOL [Concomitant]
     Dosage: 1 MG, DAILY (1/D)
  22. PROMETRIUM [Concomitant]
     Dosage: 100 MG, DAILY (1/D)
  23. CYMBALTA [Concomitant]
     Dosage: 30 MG, DAILY (1/D)
  24. PROMETHAZINE [Concomitant]
     Indication: NAUSEA
     Dosage: 12.5 MG, AS NEEDED
  25. LIDOCAINE [Concomitant]
     Dosage: 5 %, AS NEEDED
     Route: 062
  26. BABY ASPIRIN [Concomitant]
     Dosage: 81 MG, DAILY (1/D)
  27. PRILOSEC [Concomitant]
     Dosage: 20 MG, DAILY (1/D)
  28. ASPIRIN [Concomitant]
     Indication: CORONARY ARTERY DISEASE
     Dosage: 325 MG, DAILY (1/D)
     Route: 048
  29. FIBERMED [Concomitant]
     Dosage: UNK, 3/D
     Route: 048
  30. CIPRO [Concomitant]
     Dosage: 250 MG, 2/D
     Route: 048
  31. COLACE [Concomitant]
     Dosage: 100 MG, DAILY (1/D)
     Route: 048
  32. HYDROCHLOROTHIAZIDE [Concomitant]
     Dosage: 25 MG, DAILY (1/D)
     Route: 048

REACTIONS (11)
  - ASTHENIA [None]
  - CORONARY ARTERY DISEASE [None]
  - DECREASED APPETITE [None]
  - DRUG INEFFECTIVE [None]
  - FATIGUE [None]
  - HAEMORRHAGE [None]
  - HUNGER [None]
  - HYPOKALAEMIA [None]
  - PAROSMIA [None]
  - VASCULAR PSEUDOANEURYSM [None]
  - WEIGHT DECREASED [None]
